FAERS Safety Report 4283994-7 (Version None)
Quarter: 2004Q1

REPORT INFORMATION
  Report Type: 
  Country: None (occurrence: None)
  Receive Date: 20040130
  Receipt Date: 20040115
  Transmission Date: 20041129
  Serious: Yes (Death)
  Sender: FDA-Public Use
  Company Number: USA040156056

PATIENT
  Age: 70 Year
  Sex: Female

DRUGS (2)
  1. GEMZAR [Suspect]
     Indication: PROPHYLAXIS
  2. CARBOPLATIN [Concomitant]

REACTIONS (2)
  - ARRHYTHMIA [None]
  - MYOCARDIAL INFARCTION [None]
